FAERS Safety Report 14322438 (Version 1)
Quarter: 2017Q4

REPORT INFORMATION
  Report Type: Spontaneous
  Country: IT (occurrence: IT)
  Receive Date: 20171225
  Receipt Date: 20171225
  Transmission Date: 20180321
  Serious: Yes (Other)
  Sender: FDA-Public Use
  Company Number: PHHY2017IT188318

PATIENT
  Age: 24 Year
  Sex: Female

DRUGS (2)
  1. JADENU [Suspect]
     Active Substance: DEFERASIROX
     Indication: APLASTIC ANAEMIA
     Route: 065
  2. EXJADE [Suspect]
     Active Substance: DEFERASIROX
     Indication: APLASTIC ANAEMIA
     Route: 065

REACTIONS (10)
  - Hepatic failure [Unknown]
  - Abdominal pain upper [Unknown]
  - Transaminases increased [Unknown]
  - Acute hepatic failure [Unknown]
  - Pyrexia [Unknown]
  - Asthenia [Unknown]
  - Abdominal distension [Unknown]
  - Serum ferritin increased [Unknown]
  - Abdominal pain [Unknown]
  - Hepatotoxicity [Unknown]
